FAERS Safety Report 8003406-7 (Version None)
Quarter: 2011Q4

REPORT INFORMATION
  Report Type: 
  Country: None (occurrence: None)
  Receive Date: 20111222
  Receipt Date: 20111215
  Transmission Date: 20120403
  Serious: Yes (Hospitalization)
  Sender: FDA-Public Use
  Company Number: FR-ABBOTT-11P-056-0885729-00

PATIENT
  Sex: Female

DRUGS (9)
  1. PROGESTERONE [Suspect]
     Indication: PRODUCT USED FOR UNKNOWN INDICATION
     Route: 065
  2. MEDIATOR [Suspect]
     Indication: OVERWEIGHT
     Route: 048
     Dates: start: 19940101, end: 19940101
  3. ARCOXIA [Suspect]
     Indication: PRODUCT USED FOR UNKNOWN INDICATION
     Route: 065
     Dates: end: 20110510
  4. ACETAMINOPHEN AND TRAMADOL HCL [Concomitant]
     Indication: PRODUCT USED FOR UNKNOWN INDICATION
  5. MEDIATOR [Suspect]
     Route: 048
     Dates: start: 20010101, end: 20030101
  6. KETOPROFEN [Concomitant]
     Indication: PRODUCT USED FOR UNKNOWN INDICATION
  7. LEVOTHYROXINE SODIUM [Suspect]
     Indication: PRODUCT USED FOR UNKNOWN INDICATION
     Route: 065
  8. ESTREVA [Suspect]
     Indication: PRODUCT USED FOR UNKNOWN INDICATION
     Route: 065
  9. MEDIATOR [Suspect]
     Route: 048
     Dates: start: 20070101, end: 20080101

REACTIONS (2)
  - CHEST PAIN [None]
  - PULMONARY ARTERIAL HYPERTENSION [None]
